FAERS Safety Report 9500047 (Version 1)
Quarter: 2013Q1

REPORT INFORMATION
  Report Type: Spontaneous
  Country: US (occurrence: None)
  Receive Date: 20130129
  Receipt Date: 20130129
  Transmission Date: 20140127
  Serious: Yes (Other)
  Sender: FDA-Public Use
  Company Number: 1000026704

PATIENT
  Sex: Male

DRUGS (7)
  1. BYSTOLIC [Suspect]
     Indication: HYPERTENSION
     Dosage: 20 MG (20 MG, 1IN 1D),ORAL
     Route: 048
     Dates: start: 201104, end: 20120102
  2. REMERON [Suspect]
  3. GABAPENTIN (GABAPENTIN) [Suspect]
  4. MORPHINE (MORPHINE) (MORPHINE) [Concomitant]
  5. VALIUM (DIAZEPAM) (DIAZEPAM) [Concomitant]
  6. ADVAIR (SERETIDE) (SERETIDE) [Concomitant]
  7. DEXILANT (DEXLANSOPRAZOLE) (DEXLANSOPRAZOLE) [Concomitant]

REACTIONS (1)
  - Hypersensitivity [None]
